FAERS Safety Report 8010288-6 (Version None)
Quarter: 2011Q4

REPORT INFORMATION
  Report Type: 
  Country: None (occurrence: None)
  Receive Date: 20111228
  Receipt Date: 20111226
  Transmission Date: 20120403
  Serious: Yes (Death, Hospitalization)
  Sender: FDA-Public Use
  Company Number: US-JNJFOC-20111210709

PATIENT
  Age: 90 Year
  Sex: Female

DRUGS (10)
  1. PREVISCAN (FLUINDIONE) [Concomitant]
     Route: 065
     Dates: end: 20110619
  2. LASIX [Concomitant]
     Route: 065
     Dates: end: 20110619
  3. AUGMENTIN [Concomitant]
     Indication: PNEUMONIA
     Route: 065
     Dates: start: 20110601, end: 20110601
  4. LEVOFLOXACIN [Suspect]
     Indication: PNEUMONIA
     Route: 065
     Dates: start: 20110623
  5. AMLODIPINE BESYLATE [Concomitant]
     Route: 065
  6. PERINDOPRIL ERBUMINE [Concomitant]
     Route: 065
  7. PIPERACILLIN AND TAZOBACTAM [Suspect]
     Indication: PNEUMONIA
     Route: 065
     Dates: start: 20110623
  8. RILMENIDINE [Concomitant]
     Route: 065
     Dates: end: 20110619
  9. BISOPROLOL FUMARATE [Concomitant]
     Route: 065
  10. DIGOXIN [Concomitant]
     Route: 065

REACTIONS (3)
  - COMA [None]
  - SOMNOLENCE [None]
  - ENCEPHALOPATHY [None]
